FAERS Safety Report 5889919-2 (Version None)
Quarter: 2008Q3

REPORT INFORMATION
  Report Type: 
  Country: None (occurrence: None)
  Receive Date: 20080919
  Receipt Date: 20080910
  Transmission Date: 20090109
  Serious: Yes (Hospitalization, Other)
  Sender: FDA-Public Use
  Company Number: PHHY2008BR20980

PATIENT
  Age: 83 Year
  Sex: Female
  Weight: 70 kg

DRUGS (11)
  1. EXELON [Suspect]
     Indication: DEMENTIA ALZHEIMER'S TYPE
     Dosage: 9MG/5CM^2
     Route: 062
     Dates: start: 20071101
  2. EXELON [Suspect]
     Dosage: 18MG/10CM^2
     Route: 062
     Dates: start: 20080101
  3. CILOSTAZOL [Concomitant]
     Indication: CEREBROVASCULAR ACCIDENT
     Dosage: 100 MG, BID
  4. SEROQUEL [Concomitant]
     Indication: DEMENTIA ALZHEIMER'S TYPE
     Dosage: 100 MG, BID
     Route: 048
  5. MACRODANTINA [Concomitant]
     Indication: URINARY TRACT INFECTION
     Dosage: 100 MG, BID
     Route: 048
     Dates: start: 20080301
  6. MEMANTINE HCL [Concomitant]
     Indication: DEMENTIA ALZHEIMER'S TYPE
     Dosage: 10 MG, 2 TABLETS DAILY
     Route: 048
  7. LASIX [Concomitant]
     Indication: HYPERTENSION
     Dosage: 40 MG, QD
     Route: 048
  8. NEOZINE [Concomitant]
     Indication: DEMENTIA ALZHEIMER'S TYPE
     Dosage: 5 DROPS DAILY
     Route: 048
     Dates: start: 20080301
  9. ALDACTONE [Concomitant]
     Indication: HYPERTENSION
     Dosage: 1 TABLET DAILY
     Route: 048
     Dates: start: 20080601
  10. CAPTOPRIL [Concomitant]
     Indication: HYPERTENSION
     Dosage: 2 TABLETS DAILY
     Route: 048
  11. MACROGOL [Concomitant]
     Indication: LAXATIVE SUPPORTIVE CARE
     Dosage: UNK
     Route: 048
     Dates: start: 20080301

REACTIONS (3)
  - GAIT DISTURBANCE [None]
  - PNEUMONIA [None]
  - URINARY TRACT INFECTION [None]
